FAERS Safety Report 7915718-3 (Version None)
Quarter: 2011Q4

REPORT INFORMATION
  Report Type: 
  Country: None (occurrence: None)
  Receive Date: 20111115
  Receipt Date: 20111107
  Transmission Date: 20120403
  Serious: Yes (Death)
  Sender: FDA-Public Use
  Company Number: JP-GLAXOSMITHKLINE-B0761571A

PATIENT
  Age: 47 Year
  Sex: Male

DRUGS (1)
  1. ALKERAN [Suspect]
     Indication: TRANSPLANT
     Dosage: 150MG PER DAY
     Route: 042
     Dates: start: 20111001, end: 20111001

REACTIONS (2)
  - TOXIC EPIDERMAL NECROLYSIS [None]
  - GRAFT VERSUS HOST DISEASE [None]
